FAERS Safety Report 7499329-2 (Version None)
Quarter: 2011Q2

REPORT INFORMATION
  Report Type: 
  Country: None (occurrence: None)
  Receive Date: 20110524
  Receipt Date: 20110504
  Transmission Date: 20111010
  Serious: No
  Sender: FDA-Public Use
  Company Number: US-B.I. PHARMACEUTICALS,INC./RIDGEFIELD-2011-BP-07974BP

PATIENT
  Age: 72 Year
  Sex: Male

DRUGS (6)
  1. XANAX [Concomitant]
     Indication: HERPES ZOSTER
  2. PERCOCET [Concomitant]
     Indication: HERPES ZOSTER
  3. XANAX [Concomitant]
     Indication: PAIN
  4. PRADAXA [Suspect]
     Indication: ATRIAL FIBRILLATION
     Dosage: 300 MG
     Route: 048
     Dates: start: 20101201
  5. PRILOSEC [Concomitant]
     Indication: GASTROOESOPHAGEAL REFLUX DISEASE
  6. PERCOCET [Concomitant]
     Indication: PAIN

REACTIONS (3)
  - ABDOMINAL DISCOMFORT [None]
  - DYSPEPSIA [None]
  - FLATULENCE [None]
